FAERS Safety Report 18946875 (Version 1)
Quarter: 2021Q1

REPORT INFORMATION
  Report Type: Spontaneous
  Country: US (occurrence: US)
  Receive Date: 20210226
  Receipt Date: 20210226
  Transmission Date: 20210420
  Serious: No
  Sender: FDA-Public Use
  Company Number: US-ROCHE-2547509

PATIENT
  Sex: Male

DRUGS (7)
  1. PLAVIX [Concomitant]
     Active Substance: CLOPIDOGREL BISULFATE
  2. XOLAIR [Suspect]
     Active Substance: OMALIZUMAB
     Indication: PRODUCT USED FOR UNKNOWN INDICATION
     Route: 065
  3. ASPIR 81 [Concomitant]
     Active Substance: ASPIRIN
  4. VALSARTAN. [Concomitant]
     Active Substance: VALSARTAN
  5. SYNTHROID [Concomitant]
     Active Substance: LEVOTHYROXINE SODIUM
  6. COREG [Concomitant]
     Active Substance: CARVEDILOL
  7. NIACIN. [Concomitant]
     Active Substance: NIACIN

REACTIONS (5)
  - Contusion [Unknown]
  - Eye swelling [Unknown]
  - Lip swelling [Unknown]
  - Haematoma [Unknown]
  - Urticaria [Unknown]
